FAERS Safety Report 6900767-4 (Version None)
Quarter: 2010Q3

REPORT INFORMATION
  Report Type: 
  Country: None (occurrence: None)
  Receive Date: 20100803
  Receipt Date: 20100726
  Transmission Date: 20110219
  Serious: Yes (Hospitalization, Other)
  Sender: FDA-Public Use
  Company Number: CHPA2010US01985

PATIENT
  Sex: Male

DRUGS (7)
  1. LAMISIL AT [Suspect]
     Dosage: UNK, BID
     Route: 061
     Dates: start: 20090101, end: 20090201
  2. LAMISIL AT [Suspect]
     Dosage: UNK, UNK
     Route: 061
     Dates: start: 20071111
  3. GABAPENTIN [Concomitant]
  4. FUROSEMIDE [Concomitant]
  5. CITALOPRAM HYDROBROMIDE [Concomitant]
  6. CALCIUM [Concomitant]
  7. POTASSIUM [Concomitant]

REACTIONS (7)
  - BURNING SENSATION [None]
  - HYPERSENSITIVITY [None]
  - OEDEMA PERIPHERAL [None]
  - PAIN [None]
  - PARAESTHESIA [None]
  - SKIN DISCOLOURATION [None]
  - WEIGHT INCREASED [None]
